FAERS Safety Report 14916970 (Version 2)
Quarter: 2018Q3

REPORT INFORMATION
  Report Type: Spontaneous
  Country: DE (occurrence: DE)
  Receive Date: 20180520
  Receipt Date: 20180820
  Transmission Date: 20181010
  Serious: Yes (Hospitalization, Other)
  Sender: FDA-Public Use
  Company Number: PHHY2018DE009463

PATIENT
  Sex: Male
  Weight: 83 kg

DRUGS (2)
  1. EXTAVIA [Suspect]
     Active Substance: INTERFERON BETA-1B
     Indication: RELAPSING MULTIPLE SCLEROSIS
     Dosage: 250 UG/ML, (MONDAY, WEDNESDAY, THURSDAY)
     Route: 058
     Dates: start: 201208
  2. EXTAVIA [Suspect]
     Active Substance: INTERFERON BETA-1B
     Indication: CHRONIC FATIGUE SYNDROME

REACTIONS (13)
  - Appendicitis [Unknown]
  - Intervertebral disc disorder [Unknown]
  - Injection site warmth [Unknown]
  - Inappropriate schedule of drug administration [Unknown]
  - Cranial nerve disorder [Unknown]
  - Nasopharyngitis [Recovered/Resolved]
  - Pain [Unknown]
  - Peripheral swelling [Unknown]
  - Injection site pain [Unknown]
  - Abdominal rigidity [Unknown]
  - Musculoskeletal pain [Unknown]
  - Inflammation [Unknown]
  - Injection site swelling [Unknown]

NARRATIVE: CASE EVENT DATE: 201711
